FAERS Safety Report 24529300 (Version 1)
Quarter: 2024Q4

REPORT INFORMATION
  Report Type: Spontaneous
  Country: US (occurrence: None)
  Receive Date: 20241020
  Receipt Date: 20241020
  Transmission Date: 20250115
  Serious: Yes (Life-Threatening)
  Sender: Public
  Company Number: None

PATIENT
  Age: 85 Year
  Sex: Male
  Weight: 72 kg

DRUGS (10)
  1. DENOSUMAB [Suspect]
     Active Substance: DENOSUMAB
     Indication: Osteoporosis
     Dates: start: 20191215, end: 20231215
  2. CarbLevo [Concomitant]
  3. BENICAR [Concomitant]
  4. ATORVASTATIN [Concomitant]
  5. XARELTO [Concomitant]
  6. AZILECT [Concomitant]
  7. LEVOFLOXACIN [Concomitant]
  8. HERBALS\TURMERIC [Concomitant]
     Active Substance: HERBALS\TURMERIC
  9. , pacemaker [Concomitant]
  10. , walker [Concomitant]

REACTIONS (6)
  - Oral infection [None]
  - Sepsis [None]
  - Hypoaesthesia [None]
  - Tooth loss [None]
  - Pustule [None]
  - Gingival disorder [None]

NARRATIVE: CASE EVENT DATE: 20241008
